FAERS Safety Report 6245404-X (Version None)
Quarter: 2009Q2

REPORT INFORMATION
  Report Type: 
  Country: None (occurrence: None)
  Receive Date: 20090625
  Receipt Date: 20090526
  Transmission Date: 20091009
  Serious: No
  Sender: FDA-Public Use
  Company Number: US-BAYER-200911646BCC

PATIENT
  Age: 43 Year
  Sex: Female
  Weight: 102 kg

DRUGS (9)
  1. ALEVE (CAPLET) [Suspect]
     Indication: BACK PAIN
     Dosage: TOOK TWO ALEVE IN THE EVENING ON 25-MAY-2009 AND ONE IN THE MORNING ON 26-MAY-2009
     Route: 048
     Dates: start: 20090525, end: 20090526
  2. GEODON [Concomitant]
     Route: 065
  3. TEGRETOL [Concomitant]
     Route: 065
  4. LAMICTAL [Concomitant]
     Route: 065
  5. COPAXONE [Concomitant]
     Route: 065
  6. LORAZEPAM [Concomitant]
     Route: 065
  7. FOLIC ACID [Concomitant]
     Route: 065
  8. VITAMIN D [Concomitant]
     Route: 065
  9. CENTRUM [Concomitant]
     Route: 065

REACTIONS (2)
  - DIZZINESS [None]
  - NAUSEA [None]
